FAERS Safety Report 4499076-5 (Version None)
Quarter: 2004Q4

REPORT INFORMATION
  Report Type: 
  Country: None (occurrence: None)
  Receive Date: 20041108
  Receipt Date: 20041027
  Transmission Date: 20050328
  Serious: No
  Sender: FDA-Public Use
  Company Number: 2004-121761-NL

PATIENT
  Age: 46 Year
  Sex: Female

DRUGS (6)
  1. MIRTAZAPINE [Suspect]
  2. VENLAFAXINE HYDROCHLORIDE [Suspect]
     Dosage: 75 MG QD ; ORAL
     Route: 048
  3. LORAZEPAM [Concomitant]
  4. MULTIVITAMINE (S) [Concomitant]
  5. OLANZAPINE [Concomitant]
  6. ZOPICLONE [Concomitant]

REACTIONS (2)
  - LEUKOPENIA [None]
  - RED BLOOD CELL COUNT DECREASED [None]
